FAERS Safety Report 8712675 (Version 2)
Quarter: 2012Q4

REPORT INFORMATION
  Report Type: 
  Country: US (occurrence: US)
  Receive Date: 20120808
  Receipt Date: 20120924
  Transmission Date: 20130627
  Serious: Yes (Hospitalization, Disabling)
  Sender: FDA-Public Use
  Company Number: US-NAPPMUNDI-USA-2010-0058845

PATIENT
  Age: 50 None
  Sex: Male

DRUGS (15)
  1. OXYCONTIN (NDA 22-272) [Suspect]
     Indication: PAIN
     Dosage: 80 mg, qid
     Route: 048
     Dates: start: 201008
  2. OXYCODONE HCL CR TABLETS (SIMILAR TO NDA 22-272) [Concomitant]
     Indication: PAIN
     Dosage: 30 mg, q6h
     Route: 048
     Dates: start: 2006
  3. AMITRIPTYLINE [Concomitant]
     Dosage: 120 mg, UNK
  4. ARIPIPRAZOLE [Concomitant]
     Indication: SEXUAL DYSFUNCTION
     Dosage: 1 tablet, UNK
  5. AMBIEN [Concomitant]
     Dosage: 10 mg, UNK
  6. COREG [Concomitant]
     Dosage: 25 mg, bid
  7. CYMBALTA [Concomitant]
     Dosage: 60 mg, UNK
  8. DYAZIDE [Concomitant]
     Dosage: 37.5mg / 25 mg; daily
  9. LEVAQUIN LEVA-PAK [Concomitant]
     Dosage: 750 mg, daily
  10. PREVACID [Concomitant]
     Dosage: 30 mg, daily
  11. REGLAN                             /00041901/ [Concomitant]
     Dosage: 10 mg, q6h
  12. RESTORIL                           /00393701/ [Concomitant]
     Dosage: 30 mg, hs
  13. SEROQUEL [Concomitant]
     Dosage: 100 mg, hs
  14. MIRTAZAPINE [Concomitant]
     Dosage: 15 mg, UNK
  15. TEMAZEPAM [Concomitant]
     Dosage: 15 mg, UNK

REACTIONS (5)
  - Cerebrovascular accident [Recovered/Resolved with Sequelae]
  - Speech disorder [Not Recovered/Not Resolved]
  - Unevaluable event [Not Recovered/Not Resolved]
  - Therapeutic response delayed [Recovered/Resolved]
  - Product solubility abnormal [Recovered/Resolved]
